FAERS Safety Report 7565217-6 (Version None)
Quarter: 2011Q2

REPORT INFORMATION
  Report Type: 
  Country: None (occurrence: None)
  Receive Date: 20110622
  Receipt Date: 20110617
  Transmission Date: 20111010
  Serious: Yes (Hospitalization)
  Sender: FDA-Public Use
  Company Number: GB-MERCK-1106GBR00044

PATIENT
  Age: 89 Year
  Sex: Female

DRUGS (12)
  1. ASPIRIN [Concomitant]
     Route: 065
  2. AMITRIPTYLINE HYDROCHLORIDE [Concomitant]
     Route: 048
  3. PRINIVIL [Suspect]
     Indication: HYPERTENSION
     Route: 048
     Dates: start: 20100101, end: 20110518
  4. POLYETHYLENE GLYCOL [Concomitant]
     Route: 065
  5. ACETAMINOPHEN [Concomitant]
     Route: 065
  6. PRINIVIL [Suspect]
     Route: 048
  7. AMLODIPINE [Concomitant]
     Route: 048
  8. OMEPRAZOLE [Concomitant]
     Route: 065
  9. QUININE SULFATE [Concomitant]
     Route: 048
  10. LACTULOSE [Concomitant]
     Route: 065
  11. NEFOPAM [Concomitant]
     Route: 048
     Dates: start: 20110511, end: 20110518
  12. SIMVASTATIN [Concomitant]
     Route: 048

REACTIONS (3)
  - SALIVARY GLAND ENLARGEMENT [None]
  - SWOLLEN TONGUE [None]
  - ANGIOEDEMA [None]
